FAERS Safety Report 20244866 (Version 1)
Quarter: 2021Q4

REPORT INFORMATION
  Report Type: Spontaneous
  Country: US (occurrence: None)
  Receive Date: 20211229
  Receipt Date: 20211229
  Transmission Date: 20220303
  Serious: Yes (Other)
  Sender: FDA-Public Use
  Company Number: US-ROCHE-2986992

PATIENT

DRUGS (2)
  1. RITUXAN [Suspect]
     Active Substance: RITUXIMAB
     Indication: Multiple sclerosis
     Route: 065
  2. RITUXAN [Suspect]
     Active Substance: RITUXIMAB
     Indication: Pemphigus

REACTIONS (8)
  - Multiple sclerosis [Unknown]
  - Pemphigus [Unknown]
  - Rash [Unknown]
  - Blister [Unknown]
  - B-lymphocyte count decreased [Unknown]
  - Neuropathy peripheral [Unknown]
  - Off label use [Unknown]
  - SARS-CoV-2 antibody test negative [Unknown]
